FAERS Safety Report 23337475 (Version 6)
Quarter: 2024Q1

REPORT INFORMATION
  Report Type: Spontaneous
  Country: CA (occurrence: CA)
  Receive Date: 20231226
  Receipt Date: 20240310
  Transmission Date: 20240410
  Serious: Yes (Other)
  Sender: FDA-Public Use
  Company Number: CA-CELLTRION INC.-2023CA004415

PATIENT

DRUGS (17)
  1. INFLECTRA [Suspect]
     Active Substance: INFLIXIMAB-DYYB
     Indication: Colitis ulcerative
     Dosage: 1 DF, W0 RECEIVED AT HOSPITAL
     Route: 042
     Dates: start: 20230205
  2. INFLECTRA [Suspect]
     Active Substance: INFLIXIMAB-DYYB
     Dosage: 500 MG, INDUCTION W2 AND 6, THEN MAINTENANCE Q8 WEEKS
     Route: 042
     Dates: start: 20230221, end: 20230320
  3. INFLECTRA [Suspect]
     Active Substance: INFLIXIMAB-DYYB
     Dosage: 800MG (10 MG/KG) EVERY 4 WEEKS, STAT DOSE ASAP THEN Q 4 WEEKS
     Route: 042
     Dates: start: 20230404
  4. INFLECTRA [Suspect]
     Active Substance: INFLIXIMAB-DYYB
     Dosage: 800MG (10 MG/KG) EVERY 4 WEEKS, STAT DOSE ASAP THEN Q 4 WEEKS
     Route: 042
     Dates: start: 20230504
  5. INFLECTRA [Suspect]
     Active Substance: INFLIXIMAB-DYYB
     Dosage: 800MG (10 MG/KG) EVERY 4 WEEKS
     Route: 042
     Dates: start: 20230601
  6. INFLECTRA [Suspect]
     Active Substance: INFLIXIMAB-DYYB
     Dosage: 830 MG (10MG/KG), EVERY 4 WEEKS
     Route: 042
     Dates: start: 20230630
  7. INFLECTRA [Suspect]
     Active Substance: INFLIXIMAB-DYYB
     Dosage: 10 MG/KG, EVERY 4 WEEKS
     Route: 042
     Dates: start: 20231019
  8. INFLECTRA [Suspect]
     Active Substance: INFLIXIMAB-DYYB
     Dosage: 840 MG (10 MG/KG), EVERY 4 WEEKS
     Route: 042
     Dates: start: 20231117
  9. INFLECTRA [Suspect]
     Active Substance: INFLIXIMAB-DYYB
     Dosage: 830 MG (10 MG/KG), EVERY 4 WEEKS
     Route: 042
     Dates: start: 20231215
  10. INFLECTRA [Suspect]
     Active Substance: INFLIXIMAB-DYYB
     Dosage: 1000 MG, STAT DOSE THEN EVERY 4 WEEKS
     Route: 042
     Dates: start: 20240110
  11. INFLECTRA [Suspect]
     Active Substance: INFLIXIMAB-DYYB
     Dosage: 1000 MG, STAT DOSE THEN EVERY 4 WEEKS
     Route: 042
     Dates: start: 20240110
  12. INFLECTRA [Suspect]
     Active Substance: INFLIXIMAB-DYYB
     Dosage: 1000 MG, STAT DOSE THEN EVERY 4 WEEKS
     Route: 042
     Dates: start: 20240208
  13. INFLECTRA [Suspect]
     Active Substance: INFLIXIMAB-DYYB
     Dosage: 1250MG AFTER 3 WEEKS, PRESCRIBED EVERY 4 WEEKS
     Route: 042
     Dates: start: 20240229
  14. HEPATITIS B VIRUS VACCINE [Concomitant]
     Active Substance: HEPATITIS B VIRUS VACCINE
     Indication: Hepatitis B immunisation
     Dosage: DOSE NUMBER UNKNOWN, SINGLE
     Dates: start: 20231026, end: 20231026
  15. INFLUENZA VIRUS VACCINE [Concomitant]
     Active Substance: INFLUENZA VIRUS VACCINE
     Indication: Influenza immunisation
     Dosage: DOSE NUMBER UNKNOWN, SINGLE
     Dates: start: 20231026, end: 20231026
  16. MENINGOCOCCAL POLYSACCHARIDE VACCINE C NOS [Concomitant]
     Active Substance: MENINGOCOCCAL POLYSACCHARIDE VACCINE C\NEISSERIA MENINGITIDIS GROUP C CAPSULAR POLYSACCHARIDE ANTIGE
     Indication: Meningococcal immunisation
     Dosage: DOSE NUMBER UNKNOWN, SINGLE
     Dates: start: 20231026, end: 20231026
  17. PREDNISONE [Concomitant]
     Active Substance: PREDNISONE
     Dosage: 1 DF, DOSE UNKNOWN
     Dates: start: 202302

REACTIONS (11)
  - Diabetes mellitus inadequate control [Recovering/Resolving]
  - Colitis ulcerative [Not Recovered/Not Resolved]
  - Arthralgia [Not Recovered/Not Resolved]
  - Drug level decreased [Unknown]
  - Influenza [Not Recovered/Not Resolved]
  - Rhinorrhoea [Not Recovered/Not Resolved]
  - Pain [Not Recovered/Not Resolved]
  - Condition aggravated [Recovering/Resolving]
  - COVID-19 [Recovered/Resolved]
  - Off label use [Unknown]
  - Off label use [Unknown]

NARRATIVE: CASE EVENT DATE: 20230101
